FAERS Safety Report 7063572-7 (Version None)
Quarter: 2010Q4

REPORT INFORMATION
  Report Type: 
  Country: None (occurrence: None)
  Receive Date: 20101026
  Receipt Date: 20101022
  Transmission Date: 20110411
  Serious: Yes (Hospitalization, Disabling)
  Sender: FDA-Public Use
  Company Number: FR-GILEAD-2009-0024813

PATIENT
  Sex: Male

DRUGS (8)
  1. HEPSERA [Suspect]
     Indication: PRODUCT USED FOR UNKNOWN INDICATION
     Dates: start: 20011031, end: 20080718
  2. ZEFFIX [Concomitant]
     Dates: start: 19990812, end: 20100401
  3. MONICOR [Concomitant]
     Dates: start: 19990524, end: 20070101
  4. VENTOLIN [Concomitant]
     Dates: start: 19991014, end: 20070101
  5. ZYRTEC [Concomitant]
     Dates: start: 19990628, end: 20080111
  6. MOPRAL [Concomitant]
     Dates: start: 19990812, end: 20080101
  7. NEXIUM [Concomitant]
     Dates: start: 20080101
  8. PREVISCAN [Concomitant]
     Dates: start: 20070821

REACTIONS (3)
  - MULTIPLE FRACTURES [None]
  - OSTEOMALACIA [None]
  - RENAL TUBULAR ACIDOSIS [None]
